FAERS Safety Report 14262800 (Version 1)
Quarter: 2017Q4

REPORT INFORMATION
  Report Type: Other
  Country: US (occurrence: US)
  Receive Date: 20171208
  Receipt Date: 20171208
  Transmission Date: 20180321
  Serious: Yes (Death)
  Sender: FDA-Public Use
  Company Number: US-UNITED THERAPEUTICS-UNT-2017-017287

PATIENT
  Age: 38 Year
  Sex: Female
  Weight: 80 kg

DRUGS (1)
  1. REMODULIN [Suspect]
     Active Substance: TREPROSTINIL
     Indication: PULMONARY HYPERTENSION
     Dosage: 0.054 ?G/KG, CONTINUING
     Route: 041
     Dates: start: 20160609

REACTIONS (1)
  - Death [Fatal]

NARRATIVE: CASE EVENT DATE: 20171130
